FAERS Safety Report 8632859 (Version 3)
Quarter: 2013Q4

REPORT INFORMATION
  Report Type: Report from Study
  Country: US (occurrence: US)
  Receive Date: 20120625
  Receipt Date: 20131016
  Transmission Date: 20140711
  Serious: Yes (Hospitalization, Other)
  Sender: FDA-Public Use
  Company Number: US-ROCHE-1080942

PATIENT
  Age: 54 Year
  Sex: Male

DRUGS (20)
  1. PEG-INTERFERON ALFA 2A [Suspect]
     Indication: HEPATITIS C
     Route: 058
     Dates: start: 20120511, end: 20120611
  2. PEG-INTERFERON ALFA 2A [Suspect]
     Dosage: DOSE REDUCED
     Route: 058
     Dates: start: 20120611
  3. RIBAVIRIN [Suspect]
     Indication: HEPATITIS C
     Route: 048
     Dates: start: 20120511, end: 20120611
  4. RIBAVIRIN [Suspect]
     Dosage: DOSE REDUCED
     Route: 048
     Dates: start: 20120611
  5. DACLATASVIR [Suspect]
     Indication: HEPATITIS C
     Route: 048
     Dates: start: 20120511
  6. AMLODIPINE [Concomitant]
     Route: 065
     Dates: start: 201201
  7. LISINOPRIL [Concomitant]
     Route: 065
     Dates: start: 2008
  8. FLOMAX [Concomitant]
     Route: 065
     Dates: start: 2009
  9. LORAZEPAM [Concomitant]
     Route: 065
     Dates: start: 20120518
  10. AMOXICILLIN SODIUM/CLAVULANATE POTASSIUM [Concomitant]
     Route: 065
     Dates: start: 20120613
  11. KETOCONAZOLE [Concomitant]
     Route: 065
     Dates: start: 20120520
  12. EFAVIRENZ [Concomitant]
     Route: 065
     Dates: start: 2008
  13. TENOFOVIR [Concomitant]
     Route: 065
     Dates: start: 2008
  14. PREVACID [Concomitant]
     Route: 065
     Dates: start: 2010
  15. IBUPROFEN [Concomitant]
     Route: 065
     Dates: start: 2005
  16. LORATADINE [Concomitant]
     Route: 065
     Dates: start: 2002
  17. GLUCOSAMINE SULFATE/METHYL SULFONYL METHANE [Concomitant]
     Route: 065
     Dates: start: 201201
  18. ELAVIL [Concomitant]
     Route: 065
     Dates: start: 1984
  19. FLONASE [Concomitant]
     Route: 065
     Dates: start: 2002
  20. PROCRIT [Concomitant]
     Route: 065
     Dates: start: 20120601

REACTIONS (1)
  - Sepsis [Recovered/Resolved]
